FAERS Safety Report 5338183-1 (Version None)
Quarter: 2007Q2

REPORT INFORMATION
  Report Type: 
  Country: None (occurrence: None)
  Receive Date: 20070530
  Receipt Date: 20070524
  Transmission Date: 20071010
  Serious: Yes (Hospitalization)
  Sender: FDA-Public Use
  Company Number: CH-BRISTOL-MYERS SQUIBB COMPANY-13791710

PATIENT
  Age: 55 Year
  Sex: Female

DRUGS (8)
  1. BUSPAR [Suspect]
     Dosage: 20 MG (26-27-JUL-2006), 20 MG (27-JUL-02-AUG-2006) AND 30 MG(03-04-AUG-2006),
     Route: 048
  2. SURMONTIL [Suspect]
     Dates: start: 20060725, end: 20060731
  3. VALIUM [Suspect]
     Dates: start: 20060701, end: 20060730
  4. TRAMADOL HCL [Suspect]
     Dates: start: 20050101, end: 20060727
  5. PANTOZOL [Concomitant]
     Dates: start: 20050101
  6. ESTROFEM [Concomitant]
     Dates: start: 20050101, end: 20060727
  7. TENORMIN [Concomitant]
     Dates: start: 20050101
  8. BRUFEN [Concomitant]
     Dates: start: 20060719

REACTIONS (1)
  - DELIRIUM [None]
